FAERS Safety Report 17514278 (Version 1)
Quarter: 2020Q1

REPORT INFORMATION
  Report Type: Spontaneous
  Country: GB (occurrence: GB)
  Receive Date: 20200306
  Receipt Date: 20200306
  Transmission Date: 20200409
  Serious: Yes (Life-Threatening)
  Sender: FDA-Public Use
  Company Number: GB-AUROBINDO-08-AUR-04840

PATIENT
  Age: 36 Year
  Sex: Female

DRUGS (3)
  1. RISPERIDONE FILM-COATED TABLETS 0.5 MG [Suspect]
     Active Substance: RISPERIDONE
     Indication: PRODUCT USED FOR UNKNOWN INDICATION
     Dosage: UNK UNK,UNK,
     Route: 065
  2. CLOZARIL [Suspect]
     Active Substance: CLOZAPINE
     Indication: SCHIZOPHRENIA
     Dosage: 50 MG,ONCE A DAY,
     Route: 048
     Dates: start: 20031215
  3. AMISULPRIDE 50 MG TABLETS [Suspect]
     Active Substance: AMISULPRIDE
     Indication: PRODUCT USED FOR UNKNOWN INDICATION
     Dosage: UNK UNK,UNK,
     Route: 065

REACTIONS (5)
  - Treatment noncompliance [Unknown]
  - Dyspnoea [Not Recovered/Not Resolved]
  - Mental disorder [Unknown]
  - Tachycardia [Not Recovered/Not Resolved]
  - Electrocardiogram QT prolonged [Recovered/Resolved]
